FAERS Safety Report 22651904 (Version 1)
Quarter: 2023Q2

REPORT INFORMATION
  Report Type: Spontaneous
  Country: JP (occurrence: JP)
  Receive Date: 20230628
  Receipt Date: 20230628
  Transmission Date: 20230721
  Serious: Yes (Hospitalization)
  Sender: FDA-Public Use
  Company Number: JP-MLMSERVICE-20230615-4350078-1

PATIENT
  Age: 52 Year
  Sex: Male

DRUGS (3)
  1. DEXAMETHASONE [Suspect]
     Active Substance: DEXAMETHASONE
     Indication: COVID-19
     Route: 065
  2. REMDESIVIR [Concomitant]
     Active Substance: REMDESIVIR
     Indication: Antiviral treatment
     Dosage: ON DAY 1
     Route: 042
  3. REMDESIVIR [Concomitant]
     Active Substance: REMDESIVIR
     Dosage: FROM DAYS 2 TO 5 ONCE DAILY
     Route: 042

REACTIONS (2)
  - Subcutaneous abscess [Recovered/Resolved]
  - Septic shock [Recovered/Resolved]
